FAERS Safety Report 8847164 (Version 3)
Quarter: 2013Q1

REPORT INFORMATION
  Report Type: Spontaneous
  Country: US (occurrence: US)
  Receive Date: 20121018
  Receipt Date: 20130118
  Transmission Date: 20140127
  Serious: Yes (Other)
  Sender: FDA-Public Use
  Company Number: US-009507513-1210USA006880

PATIENT
  Age: 30 Year
  Sex: Female

DRUGS (1)
  1. EMEND [Suspect]
     Indication: NAUSEA
     Dosage: 150 MG, QD
     Route: 041
     Dates: start: 20121008, end: 20121008

REACTIONS (4)
  - Chest pain [Recovered/Resolved]
  - Dyspnoea [Recovered/Resolved]
  - Erythema [Recovered/Resolved]
  - Medication error [Unknown]
